FAERS Safety Report 6707630-2 (Version None)
Quarter: 2010Q2

REPORT INFORMATION
  Report Type: 
  Country: None (occurrence: None)
  Receive Date: 20100503
  Receipt Date: 20090929
  Transmission Date: 20101027
  Serious: No
  Sender: FDA-Public Use
  Company Number: US-ASTRAZENECA-2009SE16524

PATIENT
  Age: 54 Year
  Sex: Male

DRUGS (12)
  1. NEXIUM [Suspect]
     Indication: HIATUS HERNIA
     Route: 048
     Dates: start: 20030101
  2. NEXIUM [Suspect]
     Indication: BARRETT'S OESOPHAGUS
     Route: 048
     Dates: start: 20030101
  3. NEXIUM [Suspect]
     Indication: GASTROOESOPHAGEAL REFLUX DISEASE
     Route: 048
     Dates: start: 20030101
  4. NEXIUM [Suspect]
     Route: 048
     Dates: start: 20080101
  5. NEXIUM [Suspect]
     Route: 048
     Dates: start: 20080101
  6. NEXIUM [Suspect]
     Route: 048
     Dates: start: 20080101
  7. CRESTOR [Suspect]
     Dosage: 40 MG
     Route: 048
  8. HUMALOG 10 UNITS [Concomitant]
  9. HUMULIN N [Concomitant]
  10. PLAVIX [Concomitant]
  11. SLOW FE [Concomitant]
  12. ZALATAN [Concomitant]

REACTIONS (2)
  - ABDOMINAL DISCOMFORT [None]
  - CHEST PAIN [None]
